FAERS Safety Report 7329499-8 (Version None)
Quarter: 2011Q1

REPORT INFORMATION
  Report Type: 
  Country: None (occurrence: None)
  Receive Date: 20110303
  Receipt Date: 20110224
  Transmission Date: 20110831
  Serious: Yes (Other)
  Sender: FDA-Public Use
  Company Number: US-PFIZER INC-HQWYE402222NOV06

PATIENT
  Sex: Female
  Weight: 117 kg

DRUGS (2)
  1. PREMARIN [Suspect]
     Indication: VAGINAL INFECTION
     Dosage: UNK
  2. PREMARIN [Suspect]
     Indication: OFF LABEL USE
     Dosage: 0.625MG/GM; TWICE DAILY
     Route: 061
     Dates: start: 20061116, end: 20061120

REACTIONS (10)
  - VAGINAL LACERATION [None]
  - SMEAR CERVIX ABNORMAL [None]
  - CERVICAL DYSPLASIA [None]
  - VULVOVAGINAL BURNING SENSATION [None]
  - VAGINAL INFECTION [None]
  - VULVOVAGINAL PRURITUS [None]
  - VAGINAL MUCOSAL BLISTERING [None]
  - DRUG INEFFECTIVE [None]
  - CONDITION AGGRAVATED [None]
  - SEXUAL DYSFUNCTION [None]
